FAERS Safety Report 11058971 (Version 2)
Quarter: 2015Q2

REPORT INFORMATION
  Report Type: Spontaneous
  Country: US (occurrence: US)
  Receive Date: 20150423
  Receipt Date: 20150511
  Transmission Date: 20150821
  Serious: Yes (Hospitalization, Other)
  Sender: FDA-Public Use
  Company Number: US-GLAXOSMITHKLINE-US2015GSK053926

PATIENT
  Sex: Female

DRUGS (1)
  1. RYTHMOL SR [Suspect]
     Active Substance: PROPAFENONE HYDROCHLORIDE
     Indication: ATRIAL FIBRILLATION
     Dosage: 325 MG, U
     Route: 065
     Dates: start: 200501

REACTIONS (3)
  - Blood potassium decreased [Unknown]
  - Liposarcoma [Unknown]
  - Surgery [Unknown]

NARRATIVE: CASE EVENT DATE: 2013
